FAERS Safety Report 10095276 (Version 1)
Quarter: 2014Q2

REPORT INFORMATION
  Report Type: Spontaneous
  Country: US (occurrence: US)
  Receive Date: 20140422
  Receipt Date: 20140422
  Transmission Date: 20141212
  Serious: Yes (Hospitalization)
  Sender: FDA-Public Use
  Company Number: US-GILEAD-2013-0074926

PATIENT
  Age: 64 Year
  Sex: Female

DRUGS (2)
  1. LETAIRIS [Suspect]
     Indication: PULMONARY HYPERTENSION
     Dosage: 5 MG, QD
     Route: 048
     Dates: start: 20130207
  2. ADCIRCA [Concomitant]
     Indication: PULMONARY HYPERTENSION
     Dates: start: 20130207

REACTIONS (3)
  - Abdominal distension [Recovered/Resolved]
  - Cardiac failure congestive [Recovered/Resolved]
  - Peripheral swelling [Not Recovered/Not Resolved]
